FAERS Safety Report 8233273-8 (Version None)
Quarter: 2012Q1

REPORT INFORMATION
  Report Type: 
  Country: None (occurrence: None)
  Receive Date: 20120326
  Receipt Date: 20120316
  Transmission Date: 20120608
  Serious: Yes (Hospitalization)
  Sender: FDA-Public Use
  Company Number: JP-VERTEX PHARMACEUTICALS INC.-AE-2012-004053

PATIENT
  Age: 77 Year
  Sex: Female

DRUGS (10)
  1. PEGINTERFERON ALFA-2A [Concomitant]
     Indication: HEPATITIS C
     Route: 051
     Dates: start: 20120117, end: 20120209
  2. REBETOL [Concomitant]
     Indication: HEPATITIS C
     Route: 048
     Dates: start: 20120127, end: 20120202
  3. REBETOL [Concomitant]
     Route: 048
     Dates: start: 20120217, end: 20120223
  4. PEGINTERFERON ALFA-2A [Concomitant]
     Route: 051
     Dates: start: 20120223
  5. URSO 250 [Concomitant]
     Route: 048
  6. TELAVIC (TELAPREVIR) [Suspect]
  7. PEGINTERFERON ALFA-2A [Concomitant]
     Route: 051
     Dates: start: 20120216, end: 20120216
  8. TELAVIC (TELAPREVIR) [Suspect]
     Indication: HEPATITIS C
     Route: 048
     Dates: start: 20120127, end: 20120202
  9. TELAVIC (TELAPREVIR) [Suspect]
     Route: 048
     Dates: start: 20120203, end: 20120223
  10. REBETOL [Concomitant]
     Route: 048
     Dates: start: 20120203, end: 20120216

REACTIONS (1)
  - DECREASED APPETITE [None]
